FAERS Safety Report 10692612 (Version 1)
Quarter: 2015Q1

REPORT INFORMATION
  Report Type: Spontaneous
  Country: US (occurrence: US)
  Receive Date: 20150106
  Receipt Date: 20150106
  Transmission Date: 20150720
  Serious: Yes (Other)
  Sender: FDA-Public Use
  Company Number: US-ASTRAZENECA-2015SE00746

PATIENT
  Age: 60 Year
  Sex: Male
  Weight: 82 kg

DRUGS (10)
  1. FENTANYL. [Interacting]
     Active Substance: FENTANYL
     Indication: ANAESTHESIA
  2. FISH OIL [Interacting]
     Active Substance: FISH OIL
  3. HYDROCHLOROTHIAZIDE/OLMESARTAN [Concomitant]
  4. ESOMEPRAZOLE MAGNESIUM. [Suspect]
     Active Substance: ESOMEPRAZOLE MAGNESIUM
     Route: 048
  5. FLUOXETINE HCL [Interacting]
     Active Substance: FLUOXETINE HYDROCHLORIDE
  6. AMLODIPINE [Concomitant]
     Active Substance: AMLODIPINE BESYLATE
  7. METHYLENE BLUE. [Interacting]
     Active Substance: METHYLENE BLUE
     Route: 058
  8. SUCCINYLCHOLINE CHLORIDE. [Concomitant]
     Active Substance: SUCCINYLCHOLINE CHLORIDE
  9. PROPOFOL. [Concomitant]
     Active Substance: PROPOFOL
  10. DESFLURANE. [Concomitant]
     Active Substance: DESFLURANE

REACTIONS (2)
  - Drug interaction [Unknown]
  - Serotonin syndrome [Recovered/Resolved]
